FAERS Safety Report 17437900 (Version 2)
Quarter: 2020Q2

REPORT INFORMATION
  Report Type: Spontaneous
  Country: GB (occurrence: GB)
  Receive Date: 20200219
  Receipt Date: 20200414
  Transmission Date: 20200713
  Serious: Yes (Hospitalization)
  Sender: FDA-Public Use
  Company Number: GB-JNJFOC-20200221707

PATIENT
  Age: 5 Year
  Sex: Female
  Weight: 20.5 kg

DRUGS (1)
  1. CALPOL [Suspect]
     Active Substance: ACETAMINOPHEN
     Indication: PRODUCT USED FOR UNKNOWN INDICATION
     Dosage: ALMOST THE WHOLE AMOUNT OF THE BOTTLE
     Route: 048
     Dates: start: 202002

REACTIONS (2)
  - Failure of child resistant product closure [Unknown]
  - Accidental overdose [Unknown]

NARRATIVE: CASE EVENT DATE: 202002
